FAERS Safety Report 13097766 (Version 2)
Quarter: 2017Q1

REPORT INFORMATION
  Report Type: Spontaneous
  Country: US (occurrence: US)
  Receive Date: 20170109
  Receipt Date: 20170216
  Transmission Date: 20170428
  Serious: Yes (Other)
  Sender: FDA-Public Use
  Company Number: US-BAYER-2017-003627

PATIENT
  Age: 41 Year
  Sex: Female

DRUGS (2)
  1. MIRENA [Suspect]
     Active Substance: LEVONORGESTREL
     Indication: CONTRACEPTION
     Dosage: 20 MCG/24HR, CONT
     Route: 015
     Dates: start: 200605, end: 20101027
  2. MIRENA [Suspect]
     Active Substance: LEVONORGESTREL
     Indication: CONTRACEPTION
     Dosage: 20 MCG/24HR, CONT
     Route: 015
     Dates: start: 20101027, end: 20150305

REACTIONS (14)
  - Uterine leiomyoma [None]
  - Cyst [None]
  - Abdominal pain lower [Not Recovered/Not Resolved]
  - Anxiety [None]
  - Device issue [Not Recovered/Not Resolved]
  - Embedded device [Not Recovered/Not Resolved]
  - Depression [None]
  - Device difficult to use [None]
  - Device issue [None]
  - Dyspareunia [None]
  - Pain [Not Recovered/Not Resolved]
  - Uterine pain [None]
  - Fear [None]
  - Embedded device [Not Recovered/Not Resolved]

NARRATIVE: CASE EVENT DATE: 201503
